FAERS Safety Report 21369397 (Version 3)
Quarter: 2023Q2

REPORT INFORMATION
  Report Type: Report from Study
  Country: US (occurrence: US)
  Receive Date: 20220923
  Receipt Date: 20230424
  Transmission Date: 20230721
  Serious: No
  Sender: FDA-Public Use
  Company Number: US-NOVARTISTESTPH-NVSC2022US213086

PATIENT
  Age: 9 Year
  Sex: Female

DRUGS (1)
  1. VIJOICE [Suspect]
     Active Substance: ALPELISIB
     Indication: PIK3CA related overgrowth spectrum
     Dosage: 50 MG, QD
     Route: 048
     Dates: start: 20220701

REACTIONS (4)
  - Mobility decreased [Unknown]
  - General physical health deterioration [Unknown]
  - Growth disorder [Unknown]
  - Scoliosis [Unknown]

NARRATIVE: CASE EVENT DATE: 20220701
